FAERS Safety Report 14656830 (Version 1)
Quarter: 2018Q1

REPORT INFORMATION
  Report Type: Spontaneous
  Country: US (occurrence: US)
  Receive Date: 20180319
  Receipt Date: 20180319
  Transmission Date: 20180509
  Serious: No
  Sender: FDA-Public Use
  Company Number: US-SA-2017SA087944

PATIENT
  Age: 14 Year
  Sex: Female
  Weight: 49.89 kg

DRUGS (2)
  1. NASACORT ALLERGY 24HR [Suspect]
     Active Substance: TRIAMCINOLONE ACETONIDE
     Indication: SEASONAL ALLERGY
     Dosage: DOSAGE FORM IS SPRAY. ONE SPRAY PER NASAL OPENING AM
     Dates: start: 20170320, end: 20170402
  2. NASACORT ALLERGY 24HR [Suspect]
     Active Substance: TRIAMCINOLONE ACETONIDE
     Indication: HYPERSENSITIVITY
     Dosage: DOSAGE FORM IS SPRAY. ONE SPRAY PER NASAL OPENING AM
     Dates: start: 20170320, end: 20170402

REACTIONS (1)
  - Headache [Recovered/Resolved]

NARRATIVE: CASE EVENT DATE: 20170321
